FAERS Safety Report 4596103-1 (Version None)
Quarter: 2005Q1

REPORT INFORMATION
  Report Type: 
  Country: None (occurrence: None)
  Receive Date: 20050225
  Receipt Date: 20050216
  Transmission Date: 20050727
  Serious: Yes (Hospitalization)
  Sender: FDA-Public Use
  Company Number: 21998

PATIENT
  Age: 53 Year
  Sex: Male
  Weight: 145.151 kg

DRUGS (5)
  1. NIASPAN [Suspect]
     Indication: BLOOD CHOLESTEROL INCREASED
     Dosage: 1500 MG QHS PO
     Route: 048
     Dates: start: 20020301, end: 20020401
  2. ACTOS [Concomitant]
  3. AMARYL [Concomitant]
  4. LIPITOR [Concomitant]
  5. BENAZEPRIL HCL [Concomitant]

REACTIONS (6)
  - CHEST PAIN [None]
  - DYSPNOEA [None]
  - FEELING HOT [None]
  - FLUSHING [None]
  - HYPERHIDROSIS [None]
  - PAIN IN EXTREMITY [None]
